FAERS Safety Report 7177817-6 (Version None)
Quarter: 2010Q4

REPORT INFORMATION
  Report Type: 
  Country: None (occurrence: None)
  Receive Date: 20101220
  Receipt Date: 20101215
  Transmission Date: 20110411
  Serious: Yes (Death, Hospitalization, Other)
  Sender: FDA-Public Use
  Company Number: US-ELI_LILLY_AND_COMPANY-US201011006710

PATIENT
  Sex: Male

DRUGS (16)
  1. GEMCITABINE HCL [Suspect]
     Indication: PANCREATIC CARCINOMA
     Dosage: 1000 MG/M2, UNKNOWN
     Route: 065
     Dates: start: 20101012, end: 20101121
  2. PACLITAXEL [Suspect]
     Indication: PANCREATIC CARCINOMA
     Dosage: 125 MG/M2, WEEKLY (1/W)
     Route: 065
     Dates: start: 20101012, end: 20101121
  3. PROCHLORPERAZINE [Concomitant]
     Indication: NAUSEA
     Dosage: 10 MG, UNK
     Route: 048
     Dates: start: 20101012
  4. MORPHINE SULFATE [Concomitant]
     Indication: PAIN
     Dosage: 60 MG, UNK
     Route: 048
     Dates: start: 20101001
  5. OXYCODONE HCL [Concomitant]
     Indication: PAIN
     Dosage: 1-2 TABS Q4 AS NEEDED
     Dates: start: 20101001
  6. LANSOPRAZOLE [Concomitant]
     Indication: GASTROOESOPHAGEAL REFLUX DISEASE
     Dosage: 20 MG, UNK
     Route: 048
  7. ONDASETRON [Concomitant]
     Indication: NAUSEA
     Dosage: 8 MG EVERY 6 HRS, AS NEEDED
     Dates: start: 20101012
  8. GLIMEPIRIDE [Concomitant]
     Indication: DIABETES MELLITUS
     Route: 048
  9. AMLODIPINE [Concomitant]
     Indication: HYPERTENSION
  10. FERROUS SULFATE [Concomitant]
     Dosage: 975 MG, UNK
     Route: 048
     Dates: start: 20100805
  11. PHENERGAN [Concomitant]
     Dosage: 25 MG, AS NEEDED AT NIGHT
     Route: 048
     Dates: start: 20100905
  12. DOCUSATE SODIUM [Concomitant]
     Dosage: 100 MG, UNK
     Route: 048
     Dates: start: 20100905
  13. DIAZEPAM [Concomitant]
     Dosage: 5 MG, UNK
     Route: 048
     Dates: start: 20100913
  14. SENOKOT [Concomitant]
     Indication: CONSTIPATION
     Route: 048
     Dates: start: 20101012
  15. MARINOL [Concomitant]
     Indication: APPETITE DISORDER
     Dates: start: 20101116
  16. VITAMINS [Concomitant]

REACTIONS (4)
  - DEATH [None]
  - ENCEPHALOPATHY [None]
  - FAILURE TO THRIVE [None]
  - RENAL FAILURE ACUTE [None]
